FAERS Safety Report 11031251 (Version 2)
Quarter: 2015Q2

REPORT INFORMATION
  Report Type: Spontaneous
  Country: US (occurrence: US)
  Receive Date: 20150415
  Receipt Date: 20150604
  Transmission Date: 20150821
  Serious: Yes (Hospitalization, Other)
  Sender: FDA-Public Use
  Company Number: US-009507513-1201USA02555

PATIENT
  Sex: Female
  Weight: 83.45 kg

DRUGS (3)
  1. FOSAMAX [Suspect]
     Active Substance: ALENDRONATE SODIUM
     Dosage: 70 MG, QOW
     Route: 048
     Dates: start: 20070103
  2. ALENDRONATE SODIUM. [Suspect]
     Active Substance: ALENDRONATE SODIUM
     Indication: BONE DENSITY DECREASED
     Dosage: 70 MG, UNK
     Route: 048
     Dates: start: 20080311, end: 20100923
  3. FOSAMAX [Suspect]
     Active Substance: ALENDRONATE SODIUM
     Indication: OSTEOPOROSIS
     Dosage: 70 MG, QW
     Route: 048
     Dates: start: 2002, end: 20080207

REACTIONS (42)
  - Inappropriate schedule of drug administration [Unknown]
  - Gastrooesophageal reflux disease [Unknown]
  - Tibia fracture [Unknown]
  - Peripheral venous disease [Unknown]
  - Osteoarthritis [Unknown]
  - Oedema [Recovered/Resolved]
  - Hypovitaminosis [Unknown]
  - Ligament rupture [Unknown]
  - Coronary angioplasty [Unknown]
  - Hyperuricaemia [Unknown]
  - Varicose vein [Unknown]
  - Nausea [Unknown]
  - Vomiting [Unknown]
  - Femur fracture [Recovered/Resolved]
  - Limb asymmetry [Unknown]
  - Foot operation [Unknown]
  - Hyperlipidaemia [Unknown]
  - Sciatica [Unknown]
  - Hypoaesthesia [Not Recovered/Not Resolved]
  - Urinary tract infection [Unknown]
  - Lymphoedema [Not Recovered/Not Resolved]
  - Intramedullary rod insertion [Unknown]
  - Back pain [Unknown]
  - Coronary artery disease [Unknown]
  - Hypertension [Unknown]
  - Appendicectomy [Unknown]
  - Hyperkeratosis [Unknown]
  - Musculoskeletal pain [Unknown]
  - Hypothyroidism [Unknown]
  - Intervertebral disc degeneration [Unknown]
  - Cardiomegaly [Unknown]
  - Back pain [Not Recovered/Not Resolved]
  - Fibula fracture [Recovered/Resolved]
  - Meniscus injury [Unknown]
  - Ligament sprain [Unknown]
  - Balance disorder [Unknown]
  - Bursitis [Unknown]
  - Osteomyelitis chronic [Not Recovered/Not Resolved]
  - Spinal compression fracture [Unknown]
  - Chest pain [Unknown]
  - Bursitis [Unknown]
  - Dizziness [Unknown]

NARRATIVE: CASE EVENT DATE: 20031027
